FAERS Safety Report 12582566 (Version 3)
Quarter: 2016Q3

REPORT INFORMATION
  Report Type: Report from Study
  Country: BR (occurrence: BR)
  Receive Date: 20160722
  Receipt Date: 20160801
  Transmission Date: 20161109
  Serious: Yes (Other)
  Sender: FDA-Public Use
  Company Number: PHHY2016BR083277

PATIENT
  Sex: Male
  Weight: 61 kg

DRUGS (3)
  1. INSULIN [Concomitant]
     Active Substance: INSULIN NOS
     Indication: DIABETES MELLITUS
     Dosage: 3 DF, QD (3 INJECTIONS)
     Route: 065
  2. EXJADE [Suspect]
     Active Substance: DEFERASIROX
     Indication: DIABETES MELLITUS
  3. EXJADE [Suspect]
     Active Substance: DEFERASIROX
     Indication: IRON OVERLOAD
     Dosage: 1 DF OF 500 MG, Q48H
     Route: 048
     Dates: start: 2013

REACTIONS (6)
  - Blood pressure decreased [Unknown]
  - Syncope [Recovered/Resolved]
  - Spinal deformity [Unknown]
  - Inappropriate schedule of drug administration [Unknown]
  - Blood glucose decreased [Recovering/Resolving]
  - Product use issue [Unknown]

NARRATIVE: CASE EVENT DATE: 2016
